FAERS Safety Report 11869563 (Version 1)
Quarter: 2015Q4

REPORT INFORMATION
  Report Type: Spontaneous
  Country: US (occurrence: US)
  Receive Date: 20151228
  Receipt Date: 20151228
  Transmission Date: 20160305
  Serious: Yes (Other)
  Sender: FDA-Public Use
  Company Number: US-CIPLA LTD.-2015US09555

PATIENT

DRUGS (1)
  1. RISPERIDONE. [Suspect]
     Active Substance: RISPERIDONE
     Indication: PSYCHOTIC DISORDER
     Dosage: MOTHER TOOK 2 MG/DAY FOR 2 MONTHS DURING EARLY PREGNANCY
     Route: 064

REACTIONS (2)
  - Jaundice [Unknown]
  - Foetal exposure during pregnancy [Unknown]
